FAERS Safety Report 5340343-0 (Version None)
Quarter: 2007Q2

REPORT INFORMATION
  Report Type: 
  Country: None (occurrence: None)
  Receive Date: 20070405
  Receipt Date: 20070119
  Transmission Date: 20071010
  Serious: No
  Sender: FDA-Public Use
  Company Number: US200701003799

PATIENT
  Age: 51 Year
  Sex: Female

DRUGS (10)
  1. CYMBALTA [Suspect]
     Dosage: SEE IMAGE
     Dates: start: 20070118, end: 20070118
  2. CYMBALTA [Suspect]
     Dosage: SEE IMAGE
     Dates: start: 20060101
  3. CYMBALTA [Suspect]
     Dosage: SEE IMAGE
     Dates: start: 20070119
  4. CYMBALTA [Suspect]
  5. CELEBREX [Concomitant]
  6. ULTRAM [Concomitant]
  7. CALAN [Concomitant]
  8. SINGULAIR [Concomitant]
  9. XOPENEX [Concomitant]
  10. PULMICORT [Concomitant]

REACTIONS (9)
  - ANOREXIA [None]
  - DEPRESSED MOOD [None]
  - DEPRESSION [None]
  - DRUG INEFFECTIVE [None]
  - HEADACHE [None]
  - NAUSEA [None]
  - NEGLECT OF PERSONAL APPEARANCE [None]
  - PRESCRIBED OVERDOSE [None]
  - TREMOR [None]
